FAERS Safety Report 20577077 (Version 1)
Quarter: 2022Q1

REPORT INFORMATION
  Report Type: Spontaneous
  Country: US (occurrence: US)
  Receive Date: 20220310
  Receipt Date: 20220310
  Transmission Date: 20220423
  Serious: Yes (Other)
  Sender: FDA-Public Use
  Company Number: US-LUPIN PHARMACEUTICALS INC.-2022-03385

PATIENT
  Age: 58 Year
  Sex: Female

DRUGS (2)
  1. OXYCODONE [Suspect]
     Active Substance: OXYCODONE
     Indication: Pain
     Dosage: 15 MILLIGRAM (EVERY 4 HOURS)
     Route: 065
  2. MORPHINE [Suspect]
     Active Substance: MORPHINE
     Indication: Pain
     Dosage: 15 MILLIGRAM, BID (SUSTAINED RELEASE AT DOSE OF 15 MG TWICE DAILY, INTRATHECAL PUMP))
     Route: 065

REACTIONS (2)
  - Constipation [Recovering/Resolving]
  - Oesophageal achalasia [Recovering/Resolving]
